FAERS Safety Report 6780055-X (Version None)
Quarter: 2010Q2

REPORT INFORMATION
  Report Type: 
  Country: None (occurrence: None)
  Receive Date: 20100618
  Receipt Date: 20100611
  Transmission Date: 20101027
  Serious: Yes (Other)
  Sender: FDA-Public Use
  Company Number: US-PFIZER INC-2009257754

PATIENT
  Sex: Female
  Weight: 93.424 kg

DRUGS (8)
  1. GEODON [Suspect]
     Indication: BIPOLAR DISORDER
     Dosage: 80 MG, 1X/DAY
     Route: 048
  2. GEODON [Suspect]
     Dosage: 40 MG, 1X/DAY
     Route: 048
     Dates: start: 20090731, end: 20090814
  3. METFORMIN HCL [Suspect]
     Dosage: UNK
     Route: 048
     Dates: end: 20090814
  4. MONTELUKAST [Suspect]
     Dosage: UNK
     Dates: end: 20090814
  5. PROZAC [Suspect]
     Indication: BIPOLAR DISORDER
     Dosage: 20 MG, 1X/DAY
     Dates: start: 20090821
  6. TRAZODONE [Concomitant]
     Dosage: 50 MG, 1X/DAY AS NEEDED
     Route: 048
     Dates: end: 20090814
  7. TOPAMAX [Concomitant]
     Dosage: 150 MG, 1X/DAY
     Route: 048
     Dates: end: 20090814
  8. CYMBALTA [Concomitant]
     Dosage: 60 MG, 1X/DAY
     Route: 048
     Dates: end: 20090814

REACTIONS (5)
  - CAESAREAN SECTION [None]
  - DRUG EXPOSURE DURING PREGNANCY [None]
  - PREGNANCY [None]
  - PREMATURE LABOUR [None]
  - URINARY TRACT INFECTION [None]
